FAERS Safety Report 10243453 (Version 1)
Quarter: 2014Q2

REPORT INFORMATION
  Report Type: Spontaneous
  Country: US (occurrence: US)
  Receive Date: 20140618
  Receipt Date: 20140618
  Transmission Date: 20141212
  Serious: Yes (Other)
  Sender: FDA-Public Use
  Company Number: PHEH2014US012106

PATIENT
  Sex: Female

DRUGS (2)
  1. VIVELLE DOT [Suspect]
     Indication: HORMONE REPLACEMENT THERAPY
     Dosage: UNK UKN, UNK
  2. PREMARIN [Suspect]
     Indication: HORMONE REPLACEMENT THERAPY
     Dosage: UNK UKN, UNK
     Route: 048

REACTIONS (1)
  - Myocardial infarction [Unknown]
